FAERS Safety Report 4764710-9 (Version None)
Quarter: 2005Q3

REPORT INFORMATION
  Report Type: 
  Country: None (occurrence: None)
  Receive Date: 20050909
  Receipt Date: 20050412
  Transmission Date: 20060218
  Serious: Yes (Hospitalization, Other)
  Sender: FDA-Public Use
  Company Number: US-MERCK-0504USA02080

PATIENT
  Age: 67 Year
  Sex: Female
  Weight: 72 kg

DRUGS (7)
  1. VIOXX [Suspect]
     Indication: ARTHRITIS
     Route: 048
     Dates: start: 19990901, end: 20040101
  2. GLUCOPHAGE [Concomitant]
     Indication: DIABETES MELLITUS
     Route: 065
     Dates: start: 19990101
  3. ENALAPRIL MALEATE [Concomitant]
     Indication: HYPERTENSION
     Route: 065
     Dates: start: 19990101
  4. GLUCOTROL [Concomitant]
     Indication: DIABETES MELLITUS
     Route: 065
     Dates: start: 19990101
  5. ASPIRIN [Concomitant]
     Indication: CARDIAC DISORDER
     Route: 065
  6. TYLENOL [Concomitant]
     Indication: ARTHRALGIA
     Route: 065
  7. ZOCOR [Concomitant]
     Indication: BLOOD CHOLESTEROL INCREASED
     Route: 048
     Dates: start: 19990101

REACTIONS (6)
  - ABDOMINAL PAIN UPPER [None]
  - BLINDNESS [None]
  - CEREBROVASCULAR ACCIDENT [None]
  - DEPRESSION [None]
  - DYSPEPSIA [None]
  - POST-TRAUMATIC STRESS DISORDER [None]
